FAERS Safety Report 4595612-9 (Version None)
Quarter: 2005Q1

REPORT INFORMATION
  Report Type: 
  Country: None (occurrence: None)
  Receive Date: 20050223
  Receipt Date: 20050223
  Transmission Date: 20050727
  Serious: No
  Sender: FDA-Public Use
  Company Number: None

PATIENT
  Age: 57 Year
  Sex: Male

DRUGS (2)
  1. ALDACTONE [Suspect]
     Dosage: 25 MG; 1/2 T PO, BID
     Dates: start: 20040615, end: 20041117
  2. ACE INHIBITOR/ARB LISINOPRIL 40/LOSARTAN [Suspect]
     Dosage: 1 TAB PO QD
     Route: 048
     Dates: start: 20000610

REACTIONS (6)
  - ASTHENIA [None]
  - DIZZINESS [None]
  - HYPERGLYCAEMIA [None]
  - HYPERKALAEMIA [None]
  - ORTHOSTATIC HYPOTENSION [None]
  - PAIN [None]
